FAERS Safety Report 18256430 (Version 1)
Quarter: 2020Q3

REPORT INFORMATION
  Report Type: Report from Study
  Country: None (occurrence: US)
  Receive Date: 20200911
  Receipt Date: 20200911
  Transmission Date: 20201103
  Serious: Yes (Other)
  Sender: FDA-Public Use
  Company Number: US-INSMED, INC.-US-INS-20-01482

PATIENT
  Sex: Female

DRUGS (2)
  1. ARIKAYCE [Suspect]
     Active Substance: AMIKACIN
     Indication: MYCOBACTERIAL INFECTION
     Route: 055
     Dates: start: 202007, end: 202007
  2. ARIKAYCE [Suspect]
     Active Substance: AMIKACIN
     Route: 055
     Dates: start: 2020

REACTIONS (9)
  - Anaemia [Unknown]
  - Idiopathic pulmonary fibrosis [Unknown]
  - Dysphonia [Unknown]
  - Intentional dose omission [Unknown]
  - Off label use [Unknown]
  - Deafness [Unknown]
  - Interstitial lung disease [Unknown]
  - Aphonia [Unknown]
  - Dyspnoea [Recovering/Resolving]

NARRATIVE: CASE EVENT DATE: 2020
